FAERS Safety Report 5339844-0 (Version None)
Quarter: 2007Q2

REPORT INFORMATION
  Report Type: 
  Country: None (occurrence: None)
  Receive Date: 20070529
  Receipt Date: 20070511
  Transmission Date: 20071010
  Serious: Yes (Life-Threatening, Hospitalization)
  Sender: FDA-Public Use
  Company Number: DSA_29957_2007

PATIENT
  Age: 68 Year
  Sex: Male

DRUGS (9)
  1. TILDIEM (TILDIEM) 60 MG (NOT SPECIFIED) [Suspect]
     Dosage: ORAL
     Route: 048
  2. TILDIEM (TILDIEM) 60 MG (NOT SPECIFIED) [Suspect]
     Dosage: ORAL
     Route: 048
     Dates: start: 20061210
  3. METOPROLOL TARTRATE [Suspect]
     Dosage: ORAL
     Route: 048
  4. AMLODIPINE BESYLATE [Suspect]
     Dosage: ORAL
     Route: 048
  5. GALENIC/ HYDROCHLOROTHIAZIDE/ VALSARTAN/ (NISISCO) [Suspect]
     Dosage: ORAL
     Route: 048
  6. ASPIRIN [Concomitant]
  7. ROSUVASTATIN [Concomitant]
  8. MIXTARD 20/80 [Concomitant]
  9. FUROSEMIDE [Concomitant]

REACTIONS (10)
  - ABDOMINAL PAIN [None]
  - ATRIOVENTRICULAR BLOCK FIRST DEGREE [None]
  - BRADYCARDIA [None]
  - CARDIO-RESPIRATORY ARREST [None]
  - DIABETIC KETOACIDOSIS [None]
  - DRUG INEFFECTIVE [None]
  - DRUG TOXICITY [None]
  - HYPERKALAEMIA [None]
  - RENAL FAILURE ACUTE [None]
  - RHONCHI [None]
